FAERS Safety Report 9200272 (Version 2)
Quarter: 2013Q2

REPORT INFORMATION
  Report Type: Spontaneous
  Country: US (occurrence: US)
  Receive Date: 20130329
  Receipt Date: 20130404
  Transmission Date: 20140414
  Serious: No
  Sender: FDA-Public Use
  Company Number: CHPA2013US005409

PATIENT
  Age: 58 Year
  Sex: Male

DRUGS (2)
  1. PREVACID 24HR 15MG [Suspect]
     Indication: DYSPEPSIA
     Dosage: 30 MG, QD
     Route: 048
  2. TUMS [Concomitant]

REACTIONS (5)
  - Disease recurrence [Not Recovered/Not Resolved]
  - Overdose [Unknown]
  - Incorrect drug administration duration [Unknown]
  - Off label use [Unknown]
  - Therapeutic response unexpected [Unknown]
